FAERS Safety Report 9878254 (Version 1)
Quarter: 2014Q1

REPORT INFORMATION
  Report Type: Report from Study
  Country: US (occurrence: US)
  Receive Date: 20140206
  Receipt Date: 20140206
  Transmission Date: 20141002
  Serious: Yes (Hospitalization)
  Sender: FDA-Public Use
  Company Number: US-ABBVIE-14P-163-1196083-00

PATIENT
  Sex: Female

DRUGS (7)
  1. HUMIRA [Suspect]
     Indication: PSORIASIS
     Route: 058
     Dates: start: 20130912
  2. UNKNOWN ANTIHYPERTENSIVES [Suspect]
     Indication: HYPERTENSION
     Dosage: 3PILLS/DAY
  3. UNKNOWN ANTIHYPERTENSIVES [Suspect]
     Dosage: 1PILL/DAY
  4. UNKNOWN DIURETICS [Suspect]
     Indication: HYPERTENSION
  5. ZETIA [Concomitant]
     Indication: PRODUCT USED FOR UNKNOWN INDICATION
  6. METOPROLOL [Concomitant]
     Indication: PRODUCT USED FOR UNKNOWN INDICATION
  7. TEKTURNA [Concomitant]
     Indication: PRODUCT USED FOR UNKNOWN INDICATION

REACTIONS (2)
  - Blood sodium decreased [Unknown]
  - Bronchitis [Unknown]
